FAERS Safety Report 8538163-9 (Version None)
Quarter: 2012Q3

REPORT INFORMATION
  Report Type: 
  Country: None (occurrence: None)
  Receive Date: 20120726
  Receipt Date: 20120718
  Transmission Date: 20120928
  Serious: Yes (Life-Threatening)
  Sender: FDA-Public Use
  Company Number: AU-009507513-1207AUS008501

PATIENT

DRUGS (3)
  1. PEGATRON [Suspect]
     Indication: HEPATITIS C
  2. METHADON HCL TAB [Concomitant]
     Indication: DRUG DEPENDENCE
     Dosage: 100 MG, UNK
     Route: 048
  3. VICTRELIS [Suspect]
     Indication: HEPATITIS C
     Dosage: 2600 MG, QD
     Route: 048
     Dates: start: 20120427, end: 20120704

REACTIONS (4)
  - PULMONARY EMBOLISM [None]
  - DYSPNOEA [None]
  - CHEST PAIN [None]
  - PALPITATIONS [None]
